FAERS Safety Report 7331092-8 (Version None)
Quarter: 2011Q1

REPORT INFORMATION
  Report Type: 
  Country: None (occurrence: None)
  Receive Date: 20110228
  Receipt Date: 20110228
  Transmission Date: 20110831
  Serious: Yes (Life-Threatening, Disabling)
  Sender: FDA-Public Use
  Company Number: None

PATIENT
  Age: 61 Year
  Sex: Male
  Weight: 95.2554 kg

DRUGS (1)
  1. SULINDAC [Suspect]
     Indication: ARTHRITIS
     Dosage: 200 2 TIMES/DAY NOV 3,4,5 STOPPED 5TH

REACTIONS (12)
  - ARTHRALGIA [None]
  - MUSCULOSKELETAL DISORDER [None]
  - WEIGHT INCREASED [None]
  - NEUROPATHY PERIPHERAL [None]
  - DIZZINESS [None]
  - MUSCLE SPASMS [None]
  - OEDEMA PERIPHERAL [None]
  - PARAESTHESIA [None]
  - NASAL CONGESTION [None]
  - THROAT TIGHTNESS [None]
  - CONVULSION [None]
  - ABDOMINAL DISTENSION [None]
